FAERS Safety Report 9131891 (Version 1)
Quarter: 2013Q1

REPORT INFORMATION
  Report Type: Report from Study
  Country: US (occurrence: US)
  Receive Date: 20130301
  Receipt Date: 20130301
  Transmission Date: 20140127
  Serious: No
  Sender: FDA-Public Use
  Company Number: US-MYLANLABS-2012S1020289

PATIENT
  Age: 29 Year
  Sex: Female
  Weight: 41.28 kg

DRUGS (5)
  1. AMNESTEEM CAPSULES [Suspect]
     Indication: ACNE
     Route: 048
     Dates: start: 20120724, end: 20120727
  2. AMNESTEEM CAPSULES [Suspect]
     Indication: ACNE
     Route: 048
     Dates: start: 20120904, end: 20120904
  3. TEGRETOL [Concomitant]
  4. DEPAKOTE [Concomitant]
  5. BOTOX [Concomitant]
     Dosage: EVERY 3 MONTHS

REACTIONS (4)
  - Vomiting [Recovered/Resolved]
  - Nausea [Recovered/Resolved]
  - Rash [Recovered/Resolved]
  - Capillaritis [Not Recovered/Not Resolved]
